FAERS Safety Report 4999320-1 (Version None)
Quarter: 2006Q2

REPORT INFORMATION
  Report Type: 
  Country: None (occurrence: None)
  Receive Date: 20060511
  Receipt Date: 20060502
  Transmission Date: 20061013
  Serious: Yes (Disabling)
  Sender: FDA-Public Use
  Company Number: FR-AVENTIS-200611650FR

PATIENT
  Age: 81 Year
  Sex: Male

DRUGS (11)
  1. CORTANCYL [Suspect]
     Route: 048
     Dates: start: 20051027
  2. RIFAMPIN AND ISONIAZID [Suspect]
     Indication: PULMONARY TUBERCULOSIS
     Route: 048
     Dates: start: 20051027
  3. LEVOTHYROX [Suspect]
     Route: 048
  4. LEVOTHYROX [Suspect]
     Route: 048
  5. PREVISCAN [Suspect]
     Route: 048
     Dates: start: 20051227
  6. MYAMBUTOL [Suspect]
     Indication: PULMONARY TUBERCULOSIS
     Route: 048
     Dates: start: 20051027, end: 20060126
  7. CORDARONE [Concomitant]
     Route: 048
  8. MODOPAR [Concomitant]
     Route: 048
  9. CACIT [Concomitant]
     Route: 048
  10. FORADIL [Concomitant]
     Route: 048
  11. PULMICORT [Concomitant]
     Route: 048

REACTIONS (3)
  - CATARACT [None]
  - CONDITION AGGRAVATED [None]
  - OPTIC NEURITIS [None]
